FAERS Safety Report 22921463 (Version 2)
Quarter: 2024Q3

REPORT INFORMATION
  Report Type: Spontaneous
  Country: US (occurrence: None)
  Receive Date: 20230908
  Receipt Date: 20240906
  Transmission Date: 20241017
  Serious: No
  Sender: DOMPE FARMACEUTICI
  Company Number: US-FARMAPROD-202306-1899

PATIENT
  Age: 89 Year
  Sex: Female
  Weight: 53.98 kg

DRUGS (26)
  1. OXERVATE [Suspect]
     Active Substance: CENEGERMIN-BKBJ
     Indication: Neurotrophic keratopathy
     Route: 047
     Dates: start: 20230530, end: 20230727
  2. OXERVATE [Suspect]
     Active Substance: CENEGERMIN-BKBJ
     Route: 047
     Dates: start: 20240129
  3. OXERVATE [Suspect]
     Active Substance: CENEGERMIN-BKBJ
  4. OXERVATE [Suspect]
     Active Substance: CENEGERMIN-BKBJ
  5. OXERVATE [Suspect]
     Active Substance: CENEGERMIN-BKBJ
  6. OXERVATE [Suspect]
     Active Substance: CENEGERMIN-BKBJ
  7. NALTREXONE HYDROCHLORIDE [Concomitant]
     Active Substance: NALTREXONE HYDROCHLORIDE
  8. VITAMIN C [Concomitant]
     Active Substance: ASCORBIC ACID
  9. ACETAMINOPHEN [Concomitant]
     Active Substance: ACETAMINOPHEN
  10. LEVOTHYROXINE SODIUM [Concomitant]
     Active Substance: LEVOTHYROXINE SODIUM
  11. ALPHA LIPOIC ACID [Concomitant]
     Active Substance: .ALPHA.-LIPOIC ACID
  12. EYSUVIS [Concomitant]
     Active Substance: LOTEPREDNOL ETABONATE
  13. ADVIL PM (DIPHENHYDRAMINE CITRATE\IBUPROFEN) [Concomitant]
     Active Substance: DIPHENHYDRAMINE CITRATE\IBUPROFEN
     Dosage: 200 MG-38 MG
  14. PYRIDOXINE [Concomitant]
     Active Substance: PYRIDOXINE
  15. PANTOTHENIC ACID [Concomitant]
     Active Substance: PANTOTHENIC ACID
  16. REFRESH CLASSIC [Concomitant]
     Active Substance: POLYVINYL ALCOHOL\POVIDONE
     Dosage: 1.4 %-0.6%
  17. NIACINAMIDE [Concomitant]
     Active Substance: NIACINAMIDE
  18. PROLIA [Concomitant]
     Active Substance: DENOSUMAB
     Dosage: SYRINGE
  19. MOXIFLOXACIN [Concomitant]
     Active Substance: MOXIFLOXACIN
  20. DORZOLAMIDE [Concomitant]
     Active Substance: DORZOLAMIDE
     Dosage: 2 %-0.5 %
  21. RESTASIS [Concomitant]
     Active Substance: CYCLOSPORINE
  22. DIAZEPAM [Concomitant]
     Active Substance: DIAZEPAM
  23. VITAL TEARS [Concomitant]
  24. CYCLOSPORINE [Concomitant]
     Active Substance: CYCLOSPORINE
  25. CITRACAL + D MAXIMUM [Concomitant]
  26. ASCORBIC ACID [Concomitant]
     Active Substance: ASCORBIC ACID

REACTIONS (11)
  - Therapy partial responder [Unknown]
  - Treatment delayed [Unknown]
  - Ulcerative keratitis [Recovering/Resolving]
  - Corneal abrasion [Recovering/Resolving]
  - Vitreous floaters [Not Recovered/Not Resolved]
  - Eye irritation [Recovering/Resolving]
  - Vision blurred [Not Recovered/Not Resolved]
  - Eye pain [Unknown]
  - Product administration error [Unknown]
  - Photophobia [Not Recovered/Not Resolved]
  - Asthenopia [Not Recovered/Not Resolved]

NARRATIVE: CASE EVENT DATE: 20230601
